FAERS Safety Report 23685520 (Version 4)
Quarter: 2024Q2

REPORT INFORMATION
  Report Type: Spontaneous
  Country: IT (occurrence: IT)
  Receive Date: 20240329
  Receipt Date: 20240507
  Transmission Date: 20240716
  Serious: Yes (Hospitalization)
  Sender: FDA-Public Use
  Company Number: IT-JNJFOC-20240362256

PATIENT
  Age: 10 Year
  Sex: Male

DRUGS (1)
  1. RISPERDAL [Suspect]
     Active Substance: RISPERIDONE
     Indication: Product used for unknown indication
     Dosage: PRESCRIBED DOSE: 0.25 MG?NUMBER OF ADMINISTRATIONS: 1
     Route: 048

REACTIONS (3)
  - Overdose [Unknown]
  - Product label confusion [Unknown]
  - Device use confusion [Unknown]
